FAERS Safety Report 17819177 (Version 1)
Quarter: 2020Q2

REPORT INFORMATION
  Report Type: Spontaneous
  Country: FR (occurrence: FR)
  Receive Date: 20200523
  Receipt Date: 20200523
  Transmission Date: 20200714
  Serious: Yes (Hospitalization)
  Sender: FDA-Public Use
  Company Number: FR-AMGEN-FRANI2020079270

PATIENT
  Age: 37 Year
  Sex: Male
  Weight: 78 kg

DRUGS (7)
  1. ADALIMUMAB [Suspect]
     Active Substance: ADALIMUMAB
     Dosage: UNK
     Route: 058
  2. FUNGIZONE [Concomitant]
     Active Substance: AMPHOTERICIN B
     Indication: FUNGAL OESOPHAGITIS
     Route: 042
     Dates: start: 20180912
  3. QUESTRAN [Concomitant]
     Active Substance: CHOLESTYRAMINE
     Indication: ABDOMINAL PAIN
     Dosage: UNIT DOSE-004 GRAM
     Route: 048
     Dates: start: 20190116
  4. ADALIMUMAB [Suspect]
     Active Substance: ADALIMUMAB
     Indication: COLITIS ULCERATIVE
     Dosage: 40 MILLIGRAM, Q2WK
     Route: 058
     Dates: start: 20180215
  5. ADALIMUMAB [Suspect]
     Active Substance: ADALIMUMAB
     Dosage: UNK UNK, QWK
     Route: 058
  6. ADALIMUMAB [Suspect]
     Active Substance: ADALIMUMAB
     Dosage: UNK
     Route: 058
  7. VSL 3 [PROBIOTICS NOS] [Concomitant]
     Indication: PROBIOTIC THERAPY
     Dosage: 4.4 MILLIGRAM, QD
     Route: 048
     Dates: start: 20190116

REACTIONS (3)
  - Memory impairment [Recovered/Resolved]
  - Hospitalisation [Unknown]
  - Headache [Recovered/Resolved]

NARRATIVE: CASE EVENT DATE: 20200401
